FAERS Safety Report 10052255 (Version 2)
Quarter: 2014Q2

REPORT INFORMATION
  Report Type: Report from Study
  Country: NL (occurrence: NL)
  Receive Date: 20140402
  Receipt Date: 20140416
  Transmission Date: 20141212
  Serious: Yes (Hospitalization)
  Sender: FDA-Public Use
  Company Number: NL-JNJFOC-20140310906

PATIENT
  Age: 65 Year
  Sex: Male

DRUGS (11)
  1. ABIRATERONE [Suspect]
     Indication: PROSTATE CANCER METASTATIC
     Route: 048
     Dates: start: 20121114, end: 20130424
  2. PREDNISON [Concomitant]
     Route: 065
  3. OMEPRAZOLE [Concomitant]
     Route: 065
  4. VALACICLOVIR [Concomitant]
     Route: 065
  5. FERO-GRADUMET [Concomitant]
     Route: 065
  6. VENTOLIN [Concomitant]
     Route: 065
  7. FLIXOTIDE [Concomitant]
     Route: 065
  8. OXIS [Concomitant]
     Route: 065
  9. ZOVIRAX [Concomitant]
     Route: 065
  10. FUROSEMIDE [Concomitant]
     Route: 065
  11. CALCICHEW [Concomitant]
     Route: 065

REACTIONS (3)
  - Anaemia [Recovering/Resolving]
  - Thrombocytopenia [Recovering/Resolving]
  - Pneumonia [Recovering/Resolving]
